FAERS Safety Report 7096111-5 (Version None)
Quarter: 2010Q4

REPORT INFORMATION
  Report Type: 
  Country: None (occurrence: None)
  Receive Date: 20101111
  Receipt Date: 20101101
  Transmission Date: 20110411
  Serious: Yes (Hospitalization, Other)
  Sender: FDA-Public Use
  Company Number: US-ROCHE-718920

PATIENT
  Sex: Female
  Weight: 63.5 kg

DRUGS (7)
  1. ACCUTANE [Suspect]
     Indication: ACNE
     Route: 065
     Dates: start: 19941001, end: 19950301
  2. ACCUTANE [Suspect]
     Route: 065
     Dates: start: 19970301, end: 19970801
  3. ACCUTANE [Suspect]
     Route: 065
     Dates: start: 19991001, end: 20000301
  4. ORTHO TRI-CYCLEN [Concomitant]
  5. ZANTAC [Concomitant]
     Dates: start: 20000101
  6. CARAFATE [Concomitant]
     Dates: start: 20000121
  7. TORADOL [Concomitant]
     Dates: start: 20000101

REACTIONS (9)
  - CROHN'S DISEASE [None]
  - DEPRESSION [None]
  - GASTRITIS [None]
  - GASTROINTESTINAL INJURY [None]
  - HEPATIC ENZYME INCREASED [None]
  - HERNIA [None]
  - PEPTIC ULCER [None]
  - PNEUMONIA [None]
  - SMALL INTESTINAL OBSTRUCTION [None]
